FAERS Safety Report 21789966 (Version 1)
Quarter: 2022Q4

REPORT INFORMATION
  Report Type: Report from Study
  Country: US (occurrence: US)
  Receive Date: 20221228
  Receipt Date: 20221228
  Transmission Date: 20230113
  Serious: Yes (Congenital Anomaly)
  Sender: FDA-Public Use
  Company Number: US-PFIZER INC-PV202200131279

PATIENT
  Age: 5 Week
  Sex: Male
  Weight: 3.883 kg

DRUGS (6)
  1. XELJANZ [Suspect]
     Active Substance: TOFACITINIB CITRATE
     Indication: Colitis ulcerative
     Dosage: 10 MG, 2X/DAY
     Route: 048
     Dates: start: 20190415, end: 20221019
  2. ASPIRIN [Concomitant]
     Active Substance: ASPIRIN
     Indication: Pregnancy
     Dosage: 81 MG, 1X/DAY
     Route: 048
     Dates: start: 20220430, end: 20221019
  3. BALSALAZIDE DISODIUM [Concomitant]
     Active Substance: BALSALAZIDE DISODIUM
     Indication: Colitis ulcerative
     Dosage: 750 MG, 9X/DAY
     Route: 048
     Dates: start: 20190215, end: 20221019
  4. MINERALS\VITAMINS [Concomitant]
     Active Substance: MINERALS\VITAMINS
     Dosage: 1 PILL, 1X/DAY
     Route: 048
     Dates: start: 20210815, end: 20221019
  5. PROBIOTICS NOS [Concomitant]
     Active Substance: PROBIOTICS NOS
     Indication: Gastrointestinal disorder
     Dosage: 1 PILL, 1X/DAY
     Route: 048
     Dates: start: 20220110, end: 20221019
  6. ZYRTEC [Concomitant]
     Active Substance: CETIRIZINE HYDROCHLORIDE
     Indication: Hypersensitivity
     Dosage: 1 PILL, 1X/DAY
     Route: 048
     Dates: start: 20220110, end: 20221019

REACTIONS (3)
  - Maternal exposure during pregnancy [Unknown]
  - Pyelocaliectasis [Unknown]
  - Hypospadias [Unknown]

NARRATIVE: CASE EVENT DATE: 20221128
